FAERS Safety Report 4303039-X (Version None)
Quarter: 2004Q1

REPORT INFORMATION
  Report Type: 
  Country: None (occurrence: None)
  Receive Date: 20040224
  Receipt Date: 20030611
  Transmission Date: 20041129
  Serious: Yes (Hospitalization, Disabling, Other)
  Sender: FDA-Public Use
  Company Number: WAES 0306USA01432

PATIENT
  Age: 51 Year
  Sex: Female
  Weight: 83 kg

DRUGS (9)
  1. LORCET 10/650 [Concomitant]
  2. ALBUTEROL [Concomitant]
     Route: 055
  3. PREMPRO [Concomitant]
  4. TRICOR [Concomitant]
     Route: 048
  5. IBUPROFEN [Concomitant]
     Indication: ARTHRITIS
  6. IBUPROFEN [Concomitant]
  7. DILANTIN [Concomitant]
     Route: 048
  8. VIOXX [Suspect]
     Indication: OSTEOARTHRITIS
     Route: 048
     Dates: end: 20020630
  9. DETROL [Concomitant]

REACTIONS (16)
  - ACUTE MYOCARDIAL INFARCTION [None]
  - ANGINA PECTORIS [None]
  - ARTERIAL STENOSIS [None]
  - BLOOD DISORDER [None]
  - CARDIAC VALVE DISEASE [None]
  - CONVULSION [None]
  - CORONARY ARTERY DISEASE [None]
  - DEPRESSION [None]
  - DYSPEPSIA [None]
  - GASTROOESOPHAGEAL REFLUX DISEASE [None]
  - HAEMORRHAGE [None]
  - HYPERTENSION [None]
  - INTRACARDIAC THROMBUS [None]
  - OSTEOARTHRITIS [None]
  - PAIN IN EXTREMITY [None]
  - SLEEP DISORDER [None]
